FAERS Safety Report 9779777 (Version 3)
Quarter: 2014Q1

REPORT INFORMATION
  Report Type: Spontaneous
  Country: US (occurrence: US)
  Receive Date: 20131223
  Receipt Date: 20140204
  Transmission Date: 20141002
  Serious: No
  Sender: FDA-Public Use
  Company Number: US-PFIZER INC-2013364777

PATIENT
  Age: 69 Year
  Sex: Female

DRUGS (2)
  1. SUTENT [Suspect]
     Indication: RENAL CELL CARCINOMA
     Dosage: 50 MG, DAILY FOR 4 WEEKS AND THEN OFF FOR 2 (FIRST CYCLE OF SUTENT)
     Route: 048
     Dates: start: 20131101
  2. LIPITOR [Concomitant]
     Dosage: UNK

REACTIONS (3)
  - Blood bilirubin increased [Recovered/Resolved]
  - Dysphagia [Unknown]
  - Off label use [Unknown]
